FAERS Safety Report 16667234 (Version 3)
Quarter: 2020Q2

REPORT INFORMATION
  Report Type: Spontaneous
  Country: US (occurrence: US)
  Receive Date: 20190805
  Receipt Date: 20200408
  Transmission Date: 20200713
  Serious: Yes (Other)
  Sender: FDA-Public Use
  Company Number: US-GILEAD-2019-0421698

PATIENT
  Sex: Male

DRUGS (43)
  1. ABACAVIR. [Concomitant]
     Active Substance: ABACAVIR
  2. LEVOFLOXACIN. [Concomitant]
     Active Substance: LEVOFLOXACIN
  3. ONDANSETRON [Concomitant]
     Active Substance: ONDANSETRON
  4. OXYCONTIN [Concomitant]
     Active Substance: OXYCODONE HYDROCHLORIDE
  5. PENICILLIN VK [Concomitant]
     Active Substance: PENICILLIN V POTASSIUM
  6. ANDROGEL [Concomitant]
     Active Substance: TESTOSTERONE
  7. LINZESS [Concomitant]
     Active Substance: LINACLOTIDE
  8. LUNESTA [Concomitant]
     Active Substance: ESZOPICLONE
  9. CIALIS [Concomitant]
     Active Substance: TADALAFIL
  10. CEFDINIR. [Concomitant]
     Active Substance: CEFDINIR
  11. BACTRIM [Concomitant]
     Active Substance: SULFAMETHOXAZOLE\TRIMETHOPRIM
  12. PROAIR HFA [Concomitant]
     Active Substance: ALBUTEROL SULFATE
  13. GABAPENTIN. [Concomitant]
     Active Substance: GABAPENTIN
  14. DONEPEZIL. [Concomitant]
     Active Substance: DONEPEZIL
  15. TRIUMEQ [Concomitant]
     Active Substance: ABACAVIR SULFATE\DOLUTEGRAVIR SODIUM\LAMIVUDINE
  16. ESZOPICLONE. [Concomitant]
     Active Substance: ESZOPICLONE
  17. FOCALIN XR ER [Concomitant]
  18. CYMBALTA [Concomitant]
     Active Substance: DULOXETINE HYDROCHLORIDE
  19. KETOROLAC [Concomitant]
     Active Substance: KETOROLAC TROMETHAMINE
  20. SIMVASTATIN. [Concomitant]
     Active Substance: SIMVASTATIN
  21. BIKTARVY [Concomitant]
     Active Substance: BICTEGRAVIR SODIUM\EMTRICITABINE\TENOFOVIR ALAFENAMIDE FUMARATE
  22. OXYCODONE AND ACETAMINOPHEN [Concomitant]
     Active Substance: ACETAMINOPHEN\OXYCODONE HYDROCHLORIDE
  23. FENTANYL [FENTANYL CITRATE] [Concomitant]
     Active Substance: FENTANYL CITRATE
  24. PENTOXIFYLLIN [Concomitant]
     Active Substance: PENTOXIFYLLINE
  25. LEVITRA [Concomitant]
     Active Substance: VARDENAFIL HYDROCHLORIDE
  26. CYCLOBENZAPRINE. [Concomitant]
     Active Substance: CYCLOBENZAPRINE
  27. PIOGLITAZONE. [Concomitant]
     Active Substance: PIOGLITAZONE
  28. METFORMIN [Concomitant]
     Active Substance: METFORMIN HYDROCHLORIDE
  29. MEMANTINE. [Concomitant]
     Active Substance: MEMANTINE
  30. VIREAD [Suspect]
     Active Substance: TENOFOVIR DISOPROXIL FUMARATE
     Indication: HIV INFECTION
     Dosage: UNK
     Route: 048
     Dates: start: 2004, end: 201609
  31. DESCOVY [Concomitant]
     Active Substance: EMTRICITABINE\TENOFOVIR ALAFENAMIDE FUMARATE
  32. ALPRAZOLAM. [Concomitant]
     Active Substance: ALPRAZOLAM
  33. DRONABINOL. [Concomitant]
     Active Substance: DRONABINOL
  34. CEFUROXIME. [Concomitant]
     Active Substance: CEFUROXIME
  35. PREDNISONE. [Concomitant]
     Active Substance: PREDNISONE
  36. ISENTRESS [Concomitant]
     Active Substance: RALTEGRAVIR POTASSIUM
  37. LISINOPRIL. [Concomitant]
     Active Substance: LISINOPRIL
  38. PROMETHAZINE [Concomitant]
     Active Substance: PROMETHAZINE HYDROCHLORIDE
  39. JUBLIA [Concomitant]
     Active Substance: EFINACONAZOLE
  40. TIZANIDINE. [Concomitant]
     Active Substance: TIZANIDINE
  41. OXANDROLONE. [Concomitant]
     Active Substance: OXANDROLONE
  42. GRALISE [Concomitant]
     Active Substance: GABAPENTIN
  43. AMOXICILLIN + CLAV. POTASSIUM [Concomitant]
     Active Substance: AMOXICILLIN\CLAVULANATE POTASSIUM

REACTIONS (8)
  - Emotional distress [Unknown]
  - Pain [Unknown]
  - Bone loss [Unknown]
  - Economic problem [Unknown]
  - Osteoporosis [Not Recovered/Not Resolved]
  - Anxiety [Unknown]
  - Anhedonia [Unknown]
  - Tooth loss [Recovered/Resolved]

NARRATIVE: CASE EVENT DATE: 2006
